FAERS Safety Report 6448847-4 (Version None)
Quarter: 2009Q4

REPORT INFORMATION
  Report Type: 
  Country: None (occurrence: None)
  Receive Date: 20091120
  Receipt Date: 20091105
  Transmission Date: 20100525
  Serious: Yes (Death)
  Sender: FDA-Public Use
  Company Number: CA-GENENTECH-291628

PATIENT
  Sex: Male

DRUGS (1)
  1. BEVACIZUMAB [Suspect]
     Indication: GLIOBLASTOMA MULTIFORME
     Dosage: 400 MG, Q2W
     Route: 042
     Dates: start: 20090415, end: 20090813

REACTIONS (2)
  - DEATH [None]
  - PNEUMONIA [None]
